FAERS Safety Report 7094646-2 (Version None)
Quarter: 2010Q4

REPORT INFORMATION
  Report Type: 
  Country: None (occurrence: None)
  Receive Date: 20101110
  Receipt Date: 20101104
  Transmission Date: 20110411
  Serious: Yes (Hospitalization, Other)
  Sender: FDA-Public Use
  Company Number: GB-PFIZER INC-2010141153

PATIENT
  Age: 69 Year
  Sex: Female

DRUGS (16)
  1. METHOTREXATE SODIUM [Suspect]
     Indication: RHEUMATOID ARTHRITIS
     Dosage: 7.5 MG, WEEKLY
     Route: 048
     Dates: start: 20050101
  2. SULFASALAZINE [Suspect]
     Indication: RHEUMATOID ARTHRITIS
     Dosage: 500 MG, 2X/DAY
     Route: 048
     Dates: start: 20100501, end: 20101029
  3. ACETYLSALICYLIC ACID [Concomitant]
     Dosage: UNK
  4. CALCICHEW-D3 [Concomitant]
     Dosage: UNK
  5. CYCLIZINE [Concomitant]
     Dosage: UNK
  6. DIGOXIN [Concomitant]
     Dosage: UNK
  7. DOMPERIDONE [Concomitant]
     Dosage: UNK
  8. ENOXAPARIN SODIUM [Concomitant]
     Dosage: UNK
  9. FLUCLOXACILLIN [Concomitant]
     Dosage: UNK
  10. LYRICA [Concomitant]
     Dosage: UNK
  11. OMEPRAZOLE [Concomitant]
     Dosage: UNK
  12. OXYCONTIN [Concomitant]
     Dosage: UNK
  13. OXYNORM [Concomitant]
     Dosage: UNK
  14. PARACETAMOL [Concomitant]
     Dosage: UNK
  15. SENNA [Concomitant]
     Dosage: UNK
  16. STRONTIUM RANELATE [Concomitant]
     Dosage: UNK

REACTIONS (3)
  - HAEMOGLOBIN ABNORMAL [None]
  - RED BLOOD CELL COUNT ABNORMAL [None]
  - THROMBOCYTOPENIA [None]
